FAERS Safety Report 23194882 (Version 1)
Quarter: 2023Q4

REPORT INFORMATION
  Report Type: Other
  Country: US (occurrence: None)
  Receive Date: 20231117
  Receipt Date: 20231117
  Transmission Date: 20240110
  Serious: No
  Sender: FDA-Public Use
  Company Number: US-ROCHE-3454383

PATIENT
  Age: 54 Year
  Sex: Female
  Weight: 68.1 kg

DRUGS (1)
  1. OCREVUS [Suspect]
     Active Substance: OCRELIZUMAB
     Indication: Relapsing-remitting multiple sclerosis
     Route: 042
     Dates: start: 2017

REACTIONS (5)
  - JC polyomavirus test positive [Unknown]
  - Diarrhoea [Recovered/Resolved]
  - Asthenia [Recovered/Resolved]
  - Headache [Not Recovered/Not Resolved]
  - Urine odour abnormal [Recovered/Resolved]

NARRATIVE: CASE EVENT DATE: 20170101
